FAERS Safety Report 5532400-0 (Version None)
Quarter: 2007Q4

REPORT INFORMATION
  Report Type: 
  Country: None (occurrence: None)
  Receive Date: 20071203
  Receipt Date: 20071121
  Transmission Date: 20080405
  Serious: Yes (Other)
  Sender: FDA-Public Use
  Company Number: US-AMGEN-STX244691

PATIENT
  Sex: Female
  Weight: 84.09 kg

DRUGS (10)
  1. ENBREL [Suspect]
     Indication: PSORIATIC ARTHROPATHY
     Route: 058
     Dates: start: 20061221, end: 20070906
  2. FEXOFENADINE HCL [Concomitant]
     Route: 065
  3. SYNTHROID [Concomitant]
     Route: 065
  4. EFFEXOR [Concomitant]
     Route: 065
  5. MIRALAX [Concomitant]
     Route: 065
  6. DOCUSATE SODIUM [Concomitant]
     Route: 048
  7. PRILOSEC [Concomitant]
     Route: 048
  8. PROCHLORPERAZINE MALEATE [Concomitant]
     Route: 048
  9. FLUCONAZOLE [Concomitant]
     Route: 048
  10. VITAMIN CAP [Concomitant]
     Route: 065

REACTIONS (14)
  - CANDIDIASIS [None]
  - CHEST PAIN [None]
  - COLON CANCER [None]
  - COUGH [None]
  - DYSPNOEA [None]
  - HAEMORRHOIDS [None]
  - METASTASES TO LIVER [None]
  - METASTASES TO LUNG [None]
  - NAUSEA [None]
  - NEUROENDOCRINE CARCINOMA [None]
  - PHLEBITIS [None]
  - REFLUX OESOPHAGITIS [None]
  - TINNITUS [None]
  - VOMITING [None]
